FAERS Safety Report 7301484-1 (Version None)
Quarter: 2011Q1

REPORT INFORMATION
  Report Type: 
  Country: None (occurrence: None)
  Receive Date: 20110218
  Receipt Date: 20100420
  Transmission Date: 20110831
  Serious: No
  Sender: FDA-Public Use
  Company Number: US-BRISTOL-MYERS SQUIBB COMPANY-15060056

PATIENT
  Age: 30 Year
  Sex: Female
  Weight: 72 kg

DRUGS (2)
  1. KENALOG [Suspect]
     Indication: SEASONAL ALLERGY
     Route: 030
     Dates: start: 20090914
  2. KENALOG [Suspect]
     Indication: ECZEMA
     Route: 030
     Dates: start: 20090914

REACTIONS (5)
  - INJECTION SITE DISCOLOURATION [None]
  - PAIN IN EXTREMITY [None]
  - ARTHRALGIA [None]
  - INJECTION SITE ATROPHY [None]
  - BACK PAIN [None]
